FAERS Safety Report 18372069 (Version 2)
Quarter: 2020Q4

REPORT INFORMATION
  Report Type: Report from Study
  Country: FR (occurrence: FR)
  Receive Date: 20201012
  Receipt Date: 20201013
  Transmission Date: 20210114
  Serious: Yes (Other)
  Sender: FDA-Public Use
  Company Number: FR-PFIZER INC-2020385133

PATIENT

DRUGS (1)
  1. TEMSIROLIMUS. [Suspect]
     Active Substance: TEMSIROLIMUS
     Indication: THYMUS DISORDER
     Dosage: UNK

REACTIONS (2)
  - Recall phenomenon [Unknown]
  - Myocarditis [Unknown]
